FAERS Safety Report 10445785 (Version 2)
Quarter: 2018Q4

REPORT INFORMATION
  Report Type: Spontaneous
  Country: US (occurrence: US)
  Receive Date: 20140910
  Receipt Date: 20181109
  Transmission Date: 20190204
  Serious: Yes (Death, Hospitalization)
  Sender: FDA-Public Use
  Company Number: US-MYLANLABS-2014M1004176

PATIENT
  Age: 41 Year
  Sex: Female

DRUGS (1)
  1. VERAPAMIL [Suspect]
     Active Substance: VERAPAMIL HYDROCHLORIDE
     Indication: HEADACHE
     Dosage: 30 VERAPAMIL ER 120 MG IN A 5-HOUR PERIOD
     Route: 065

REACTIONS (4)
  - Toxicity to various agents [Fatal]
  - Medication error [Fatal]
  - Accidental overdose [Fatal]
  - Cardiac arrest [Fatal]
